FAERS Safety Report 8657811 (Version 3)
Quarter: 2013Q4

REPORT INFORMATION
  Report Type: Spontaneous
  Country: US (occurrence: US)
  Receive Date: 20120710
  Receipt Date: 20131212
  Transmission Date: 20140711
  Serious: No
  Sender: FDA-Public Use
  Company Number: US-PFIZER INC-2012162530

PATIENT
  Age: 35 Year
  Sex: Male

DRUGS (3)
  1. CHANTIX [Suspect]
     Indication: SMOKING CESSATION THERAPY
     Dosage: UNK
     Dates: start: 20110101, end: 20110307
  2. CHANTIX [Suspect]
     Dosage: STARTING PACK, UNK
     Dates: start: 20110112, end: 201102
  3. CHANTIX [Suspect]
     Dosage: CONTINUING PACK, UNK
     Dates: start: 20110112

REACTIONS (3)
  - Aggression [Unknown]
  - Abnormal behaviour [Unknown]
  - Mental disorder [Unknown]
